FAERS Safety Report 6472359-5 (Version None)
Quarter: 2009Q4

REPORT INFORMATION
  Report Type: 
  Country: None (occurrence: None)
  Receive Date: 20091130
  Receipt Date: 20091110
  Transmission Date: 20100525
  Serious: Yes (Other)
  Sender: FDA-Public Use
  Company Number: 07-AUR-01046

PATIENT
  Age: 59 Year
  Sex: Male

DRUGS (10)
  1. LISINOPRIL [Suspect]
  2. METFORMIN HCL [Suspect]
     Dates: start: 19960101
  3. ACOMPLIA [Suspect]
     Indication: WEIGHT CONTROL
     Dosage: 20 MG - DAILY - ORAL
     Route: 048
     Dates: start: 20070116
  4. ASPIRIN [Concomitant]
  5. FRUSEMIDE [Concomitant]
  6. GLICLAZIDE [Concomitant]
  7. PIOGLITAZONE [Concomitant]
  8. SIMVASTATIN [Concomitant]
  9. AMGIOTENSIN II RECEPTOR BLOCKER [Concomitant]
  10. ANGIOTENSIN II RECEPTOR BLOCKER [Concomitant]

REACTIONS (1)
  - RENAL IMPAIRMENT [None]
